FAERS Safety Report 9292590 (Version 3)
Quarter: 2013Q2

REPORT INFORMATION
  Report Type: Spontaneous
  Country: US (occurrence: US)
  Receive Date: 20130516
  Receipt Date: 20130618
  Transmission Date: 20140414
  Serious: Yes (Death)
  Sender: FDA-Public Use
  Company Number: US-UCBSA-085922

PATIENT
  Age: 19 Year
  Sex: Female
  Weight: 68.9 kg

DRUGS (6)
  1. CIMZIA [Suspect]
     Indication: CROHN^S DISEASE
     Route: 058
  2. CIMZIA [Suspect]
     Indication: CROHN^S DISEASE
     Dosage: STRENGTH: 400 MG
  3. 6-MP [Suspect]
     Indication: CROHN^S DISEASE
     Dosage: DOSE: 75 MG; DAILY
     Route: 048
  4. MERCAPTOPURINE [Concomitant]
  5. ZOFRAN [Concomitant]
     Dosage: 50 MG PRN
  6. ULTRAM [Concomitant]
     Dosage: UNKNOWN DOSE

REACTIONS (8)
  - Bronchopneumonia [Fatal]
  - Meningitis [Fatal]
  - Sepsis [Fatal]
  - Beta haemolytic streptococcal infection [Fatal]
  - White blood cell count increased [Unknown]
  - Rectal discharge [Unknown]
  - Abscess [Unknown]
  - Unresponsive to stimuli [Unknown]
